FAERS Safety Report 21301013 (Version 1)
Quarter: 2022Q3

REPORT INFORMATION
  Report Type: Spontaneous
  Country: DO (occurrence: DO)
  Receive Date: 20220907
  Receipt Date: 20220907
  Transmission Date: 20221026
  Serious: Yes (Other)
  Sender: FDA-Public Use
  Company Number: DO-SA-SAC20220905000201

PATIENT
  Sex: Female

DRUGS (3)
  1. PLAVIX [Suspect]
     Active Substance: CLOPIDOGREL BISULFATE
     Dosage: 1DF, QD
     Route: 048
     Dates: start: 2021, end: 202208
  2. ALIBENDOL [Suspect]
     Active Substance: ALIBENDOL
     Dosage: 1DF QD
     Route: 048
     Dates: start: 2021, end: 202208
  3. DIOSMIN [Suspect]
     Active Substance: DIOSMIN
     Dosage: UNK
     Route: 065

REACTIONS (3)
  - Asphyxia [Recovered/Resolved]
  - Influenza [Recovered/Resolved]
  - Nasal congestion [Recovered/Resolved]

NARRATIVE: CASE EVENT DATE: 20220101
